FAERS Safety Report 7806495 (Version 7)
Quarter: 2013Q1

REPORT INFORMATION
  Report Type: Spontaneous
  Country: US (occurrence: US)
  Receive Date: 20110209
  Receipt Date: 20130104
  Transmission Date: 20140127
  Serious: Yes (Other)
  Sender: FDA-Public Use
  Company Number: US-ASTRAZENECA-2011SE05272

PATIENT
  Age: 55 Year
  Sex: Male

DRUGS (2)
  1. NEXIUM [Suspect]
     Indication: GASTROOESOPHAGEAL REFLUX DISEASE
     Route: 048
  2. CRESTOR [Suspect]
     Route: 048

REACTIONS (13)
  - Polyp [Unknown]
  - Precancerous cells present [Unknown]
  - Pharyngeal disorder [Unknown]
  - Back disorder [Unknown]
  - Dyspnoea [Unknown]
  - Gastric disorder [Unknown]
  - Dysstasia [Unknown]
  - Posture abnormal [Unknown]
  - Memory impairment [Unknown]
  - Diarrhoea [Unknown]
  - Hearing impaired [Unknown]
  - Bronchitis [Unknown]
  - Dyspnoea [Unknown]
